FAERS Safety Report 14629357 (Version 1)
Quarter: 2018Q1

REPORT INFORMATION
  Report Type: Spontaneous
  Country: US (occurrence: US)
  Receive Date: 20180312
  Receipt Date: 20180312
  Transmission Date: 20180509
  Serious: No
  Sender: FDA-Public Use
  Company Number: None

PATIENT
  Age: 60 Year
  Sex: Female
  Weight: 90 kg

DRUGS (9)
  1. CO-Q10 [Concomitant]
  2. CONTRAVE [Suspect]
     Active Substance: BUPROPION HYDROCHLORIDE\NALTREXONE HYDROCHLORIDE
     Indication: WEIGHT INCREASED
     Dosage: ?          QUANTITY:2 TABLET(S);?
     Route: 048
  3. MAGNESIUM [Concomitant]
     Active Substance: MAGNESIUM
  4. SUMATRIPTAN. [Concomitant]
     Active Substance: SUMATRIPTAN
  5. GLUCOSOMINE [Concomitant]
  6. VITAMIN D [Concomitant]
     Active Substance: CHOLECALCIFEROL
  7. SYNTHROID [Concomitant]
     Active Substance: LEVOTHYROXINE SODIUM
  8. CYTOMEL [Concomitant]
     Active Substance: LIOTHYRONINE SODIUM
  9. MULTI-VITAMIN (CENTRUM SILVER) [Concomitant]

REACTIONS (2)
  - Pain in extremity [None]
  - Myalgia [None]

NARRATIVE: CASE EVENT DATE: 20180216
